FAERS Safety Report 4818464-8 (Version None)
Quarter: 2005Q4

REPORT INFORMATION
  Report Type: 
  Country: None (occurrence: None)
  Receive Date: 20051031
  Receipt Date: 20051031
  Transmission Date: 20060501
  Serious: Yes (Hospitalization)
  Sender: FDA-Public Use
  Company Number: None

PATIENT
  Age: 49 Year
  Sex: Male
  Weight: 100.6985 kg

DRUGS (3)
  1. CLOFARABINE [Suspect]
     Indication: ADULT T-CELL LYMPHOMA/LEUKAEMIA REFRACTORY
     Dosage: 90 MG IV DAILY
     Route: 042
     Dates: start: 20050804, end: 20050808
  2. CLOFARABINE [Suspect]
     Indication: NEOPLASM RECURRENCE
     Dosage: 90 MG IV DAILY
     Route: 042
     Dates: start: 20050804, end: 20050808
  3. CYTARABINE [Suspect]
     Dosage: 2300 MG IV DAILY
     Route: 042
     Dates: start: 20050804, end: 20050808

REACTIONS (2)
  - NEUTROPENIA [None]
  - PYREXIA [None]
